FAERS Safety Report 23979296 (Version 1)
Quarter: 2024Q2

REPORT INFORMATION
  Report Type: Spontaneous
  Country: GB (occurrence: GB)
  Receive Date: 20240615
  Receipt Date: 20240615
  Transmission Date: 20240716
  Serious: Yes (Life-Threatening, Other)
  Sender: FDA-Public Use
  Company Number: None

PATIENT
  Age: 67 Year
  Sex: Male
  Weight: 150 kg

DRUGS (3)
  1. SERTRALINE [Suspect]
     Active Substance: SERTRALINE HYDROCHLORIDE
     Indication: Schizophrenia
     Dosage: 100MG, 150MG
     Dates: start: 20231010
  2. RISPERIDONE [Concomitant]
     Active Substance: RISPERIDONE
     Dates: start: 20230202
  3. MIRTAZAPINE [Concomitant]
     Active Substance: MIRTAZAPINE

REACTIONS (2)
  - Fatigue [Unknown]
  - Dysphagia [Not Recovered/Not Resolved]

NARRATIVE: CASE EVENT DATE: 20240213
